FAERS Safety Report 21448336 (Version 4)
Quarter: 2025Q3

REPORT INFORMATION
  Report Type: Spontaneous
  Country: EU (occurrence: EU)
  Receive Date: 20221013
  Receipt Date: 20250702
  Transmission Date: 20251021
  Serious: Yes (Hospitalization, Other)
  Sender: BRISTOL-MYERS SQUIBB COMPANY
  Company Number: EU-BRISTOL-MYERS SQUIBB COMPANY-2022-115324

PATIENT
  Age: 12 Year
  Sex: Male

DRUGS (7)
  1. AZACITIDINE [Suspect]
     Active Substance: AZACITIDINE
     Indication: Acute leukaemia
  2. VENETOCLAX [Suspect]
     Active Substance: VENETOCLAX
     Indication: Acute leukaemia
  3. VENETOCLAX [Suspect]
     Active Substance: VENETOCLAX
  4. IDARUBICIN [Concomitant]
     Active Substance: IDARUBICIN
     Indication: Acute biphenotypic leukaemia
  5. FLUDARABINE [Concomitant]
     Active Substance: FLUDARABINE PHOSPHATE
     Indication: Acute biphenotypic leukaemia
  6. GEMTUZUMAB OZOGAMICIN [Concomitant]
     Active Substance: GEMTUZUMAB OZOGAMICIN
     Indication: Acute biphenotypic leukaemia
  7. CYTARABINE [Concomitant]
     Active Substance: CYTARABINE
     Indication: Acute biphenotypic leukaemia

REACTIONS (2)
  - Bronchopulmonary aspergillosis [Recovered/Resolved]
  - Febrile neutropenia [Recovered/Resolved]
